FAERS Safety Report 14839332 (Version 4)
Quarter: 2019Q2

REPORT INFORMATION
  Report Type: Spontaneous
  Country: FR (occurrence: FR)
  Receive Date: 20180502
  Receipt Date: 20190402
  Transmission Date: 20190711
  Serious: Yes (Hospitalization, Other)
  Sender: FDA-Public Use
  Company Number: FR-TAKEDA-2018TUS014302

PATIENT
  Age: 18 Year
  Sex: Female

DRUGS (3)
  1. ENTYVIO [Suspect]
     Active Substance: VEDOLIZUMAB
     Indication: CROHN^S DISEASE
     Dosage: UNK
     Route: 065
  2. REMICADE [Suspect]
     Active Substance: INFLIXIMAB
     Indication: CROHN^S DISEASE
     Dosage: 5 MILLIGRAM/KILOGRAM
     Route: 042
     Dates: start: 200010
  3. REMICADE [Suspect]
     Active Substance: INFLIXIMAB
     Dosage: 10 MILLIGRAM/KILOGRAM
     Route: 042
     Dates: start: 2011, end: 20151207

REACTIONS (27)
  - Weight increased [Unknown]
  - Pneumonia mycoplasmal [Recovered/Resolved]
  - Upper respiratory tract infection [Unknown]
  - Sinusitis [Unknown]
  - Lupus-like syndrome [Not Recovered/Not Resolved]
  - Psoriasis [Not Recovered/Not Resolved]
  - Folliculitis [Not Recovered/Not Resolved]
  - Rash pustular [Unknown]
  - Anal fistula [Not Recovered/Not Resolved]
  - Transient ischaemic attack [Unknown]
  - Neutrophilic dermatosis [Recovered/Resolved]
  - Anal abscess [Unknown]
  - Crohn^s disease [Not Recovered/Not Resolved]
  - Hidradenitis [Not Recovered/Not Resolved]
  - Ankylosing spondylitis [Not Recovered/Not Resolved]
  - Urinary tract infection [Unknown]
  - Bronchitis [Unknown]
  - Staphylococcal infection [Not Recovered/Not Resolved]
  - Epstein-Barr virus infection [Unknown]
  - Rheumatic disorder [Unknown]
  - Exposure during pregnancy [Recovered/Resolved]
  - Off label use [Unknown]
  - Guttate psoriasis [Recovered/Resolved]
  - Meningitis [Recovered/Resolved]
  - Drug specific antibody present [Unknown]
  - Pleurisy [Unknown]
  - Sepsis [Unknown]

NARRATIVE: CASE EVENT DATE: 200010
